FAERS Safety Report 7597592-0 (Version None)
Quarter: 2011Q3

REPORT INFORMATION
  Report Type: 
  Country: None (occurrence: None)
  Receive Date: 20110708
  Receipt Date: 20110627
  Transmission Date: 20111222
  Serious: Yes (Hospitalization)
  Sender: FDA-Public Use
  Company Number: FR-ROCHE-786033

PATIENT
  Sex: Male
  Weight: 98 kg

DRUGS (1)
  1. TOCILIZUMAB [Suspect]
     Indication: RHEUMATOID ARTHRITIS
     Dosage: MOST RECENT DOSE PRIOR TO SAE 04 NOVEMBER 2010 AND FREQUENCY: CYCLE
     Route: 042
     Dates: start: 20100617

REACTIONS (2)
  - JOINT SWELLING [None]
  - MUSCULOSKELETAL PAIN [None]
